FAERS Safety Report 9424483 (Version 2)
Quarter: 2013Q3

REPORT INFORMATION
  Report Type: Report from Study
  Country: US (occurrence: US)
  Receive Date: 20130729
  Receipt Date: 20130807
  Transmission Date: 20140515
  Serious: Yes (Hospitalization)
  Sender: FDA-Public Use
  Company Number: US-ROCHE-1253480

PATIENT
  Age: 79 Year
  Sex: Female

DRUGS (1)
  1. LUCENTIS [Suspect]
     Indication: AGE-RELATED MACULAR DEGENERATION
     Dosage: DOSE:0.05 CC. MOST RECENT DOSE 14/MAR/2013
     Route: 050

REACTIONS (6)
  - Fall [Unknown]
  - Laceration [Unknown]
  - Head injury [Unknown]
  - Rib fracture [Unknown]
  - Periorbital contusion [Unknown]
  - Drug ineffective [Unknown]
